FAERS Safety Report 9038468 (Version 1)
Quarter: 2013Q1

REPORT INFORMATION
  Report Type: Spontaneous
  Country: FR (occurrence: FR)
  Receive Date: 20130129
  Receipt Date: 20130129
  Transmission Date: 20140127
  Serious: Yes (Other)
  Sender: FDA-Public Use
  Company Number: FR-ROCHE-1184050

PATIENT
  Age: 50 Year
  Sex: Female

DRUGS (1)
  1. ZELBORAF [Suspect]
     Indication: PRODUCT USED FOR UNKNOWN INDICATION
     Route: 048
     Dates: start: 20120201

REACTIONS (3)
  - Rash pustular [Not Recovered/Not Resolved]
  - Cyst [Not Recovered/Not Resolved]
  - Hyperkeratosis [Not Recovered/Not Resolved]
